FAERS Safety Report 12133994 (Version 1)
Quarter: 2016Q1

REPORT INFORMATION
  Report Type: Spontaneous
  Country: US (occurrence: US)
  Receive Date: 20160301
  Receipt Date: 20160301
  Transmission Date: 20160526
  Serious: No
  Sender: FDA-Public Use
  Company Number: US-INSYS THERAPEUTICS, INC-INS201506-000285

PATIENT
  Sex: Male
  Weight: 88.45 kg

DRUGS (8)
  1. MORPHINE SULPHATE [Concomitant]
     Active Substance: MORPHINE SULFATE
     Indication: BACK PAIN
  2. MORPHINE SULPHATE [Concomitant]
     Active Substance: MORPHINE SULFATE
     Indication: NECK PAIN
  3. DILAUDID [Concomitant]
     Active Substance: HYDROMORPHONE HYDROCHLORIDE
     Indication: BACK PAIN
  4. DILAUDID [Concomitant]
     Active Substance: HYDROMORPHONE HYDROCHLORIDE
     Indication: NECK PAIN
  5. INSULIN [Concomitant]
     Active Substance: INSULIN NOS
     Indication: DIABETES MELLITUS
  6. SUBSYS [Suspect]
     Active Substance: FENTANYL
     Route: 060
  7. SUBSYS [Suspect]
     Active Substance: FENTANYL
     Indication: NECK PAIN
     Route: 060
  8. SUBSYS [Suspect]
     Active Substance: FENTANYL
     Indication: BACK PAIN
     Route: 060

REACTIONS (7)
  - Ear pain [Unknown]
  - Drug ineffective for unapproved indication [Unknown]
  - Somnolence [Unknown]
  - Deafness [Recovering/Resolving]
  - Dizziness [Unknown]
  - Nervousness [Unknown]
  - Weight decreased [Not Recovered/Not Resolved]
